FAERS Safety Report 10177478 (Version 2)
Quarter: 2014Q2

REPORT INFORMATION
  Report Type: Spontaneous
  Country: NZ (occurrence: NZ)
  Receive Date: 20140516
  Receipt Date: 20140616
  Transmission Date: 20141212
  Serious: Yes (Hospitalization, Other)
  Sender: FDA-Public Use
  Company Number: NZ-ABBVIE-14P-118-1236085-00

PATIENT
  Sex: Female

DRUGS (3)
  1. HUMIRA [Suspect]
     Indication: RHEUMATOID ARTHRITIS
  2. PANADOL [Concomitant]
     Indication: PRODUCT USED FOR UNKNOWN INDICATION
  3. PREDNISONE [Concomitant]
     Indication: PRODUCT USED FOR UNKNOWN INDICATION

REACTIONS (14)
  - Cardiac disorder [Unknown]
  - Viral myocarditis [Unknown]
  - Pneumonia [Unknown]
  - Sinusitis [Recovered/Resolved]
  - Intestinal resection [Unknown]
  - Drug effect decreased [Unknown]
  - Fatigue [Unknown]
  - Pneumonia [Recovering/Resolving]
  - Pneumonia [Recovered/Resolved]
  - Pneumonia [Recovered/Resolved]
  - Surgery [Recovered/Resolved]
  - Drug effect decreased [Unknown]
  - Pain [Unknown]
  - Musculoskeletal stiffness [Unknown]
